FAERS Safety Report 24094293 (Version 1)
Quarter: 2024Q3

REPORT INFORMATION
  Report Type: Report from Study
  Country: US (occurrence: None)
  Receive Date: 20240716
  Receipt Date: 20240716
  Transmission Date: 20241017
  Serious: Yes (Hospitalization, Other)
  Sender: ASTRAZENECA
  Company Number: 2020SF03099

PATIENT
  Sex: Male

DRUGS (1)
  1. LYNPARZA [Suspect]
     Active Substance: OLAPARIB
     Indication: Pancreatic carcinoma
     Route: 048
     Dates: start: 20200718

REACTIONS (5)
  - Aortic stenosis [Unknown]
  - Constipation [Unknown]
  - Flatulence [Unknown]
  - Diarrhoea [Unknown]
  - Fatigue [Unknown]
